FAERS Safety Report 21932653 (Version 3)
Quarter: 2023Q1

REPORT INFORMATION
  Report Type: Spontaneous
  Country: US (occurrence: US)
  Receive Date: 20230131
  Receipt Date: 20230220
  Transmission Date: 20230418
  Serious: Yes (Death)
  Sender: FDA-Public Use
  Company Number: US-PFIZER INC-202300045960

PATIENT
  Age: 59 Year
  Sex: Male

DRUGS (1)
  1. VYNDAMAX [Suspect]
     Active Substance: TAFAMIDIS
     Indication: Amyloidosis
     Dosage: 61 MG
     Dates: start: 20221115, end: 20221115

REACTIONS (2)
  - Cardiac amyloidosis [Fatal]
  - Off label use [Unknown]

NARRATIVE: CASE EVENT DATE: 20221115
